FAERS Safety Report 6500109-2 (Version None)
Quarter: 2009Q4

REPORT INFORMATION
  Report Type: 
  Country: None (occurrence: None)
  Receive Date: 20091214
  Receipt Date: 20091214
  Transmission Date: 20100525
  Serious: No
  Sender: FDA-Public Use
  Company Number: None

PATIENT
  Sex: Male
  Weight: 73.4827 kg

DRUGS (1)
  1. BENZONATATE 100MG CAP RX # 21560481 [Suspect]
     Indication: COUGH
     Dosage: 1 3 TIMES ORAL
     Route: 048
     Dates: start: 20091028, end: 20091102

REACTIONS (5)
  - DIZZINESS [None]
  - NASAL CONGESTION [None]
  - NAUSEA [None]
  - PRESYNCOPE [None]
  - SOMNOLENCE [None]
